FAERS Safety Report 9521428 (Version 2)
Quarter: 2013Q3

REPORT INFORMATION
  Report Type: Spontaneous
  Country: US (occurrence: US)
  Receive Date: 20130913
  Receipt Date: 20130924
  Transmission Date: 20140515
  Serious: Yes (Life-Threatening, Hospitalization)
  Sender: FDA-Public Use
  Company Number: US-PERRIGO-13US009128

PATIENT
  Age: 72 Year
  Sex: Male
  Weight: 86.17 kg

DRUGS (3)
  1. NICOTINE POLACRILEX 4MG MINT COATED 532 [Suspect]
     Indication: SMOKING CESSATION THERAPY
     Dosage: 2 PIECES, EVERY 10-12 MINUTES
     Route: 002
     Dates: start: 2010, end: 20130830
  2. LISINOPRIL [Concomitant]
     Indication: HYPERTENSION
     Dosage: 5MG, UNKNOWN
     Route: 065
     Dates: start: 2008
  3. BAYER ASPIRIN [Concomitant]
     Indication: ROUTINE HEALTH MAINTENANCE
     Dosage: 81MG, UNKNOWN
     Route: 065

REACTIONS (8)
  - Apparent death [Recovered/Resolved]
  - Dehydration [Recovered/Resolved]
  - Diarrhoea [Recovering/Resolving]
  - Heart rate increased [Recovered/Resolved]
  - Blood pressure decreased [Recovered/Resolved]
  - Tobacco abuse [Recovered/Resolved]
  - Incorrect drug administration duration [Recovered/Resolved]
  - Wrong technique in drug usage process [Recovered/Resolved]
